FAERS Safety Report 11045244 (Version 1)
Quarter: 2015Q2

REPORT INFORMATION
  Report Type: Spontaneous
  Country: US (occurrence: US)
  Receive Date: 20150417
  Receipt Date: 20150417
  Transmission Date: 20150821
  Serious: No
  Sender: FDA-Public Use
  Company Number: US-PFIZER INC-2015127031

PATIENT
  Age: 61 Year
  Sex: Female
  Weight: 117 kg

DRUGS (1)
  1. NEURONTIN [Suspect]
     Active Substance: GABAPENTIN
     Indication: SEIZURE
     Dosage: 300 MG, FOR 3 DAYS THEN 600 MG

REACTIONS (1)
  - Fibromyalgia [Not Recovered/Not Resolved]
